FAERS Safety Report 4305520-6 (Version None)
Quarter: 2004Q1

REPORT INFORMATION
  Report Type: 
  Country: None (occurrence: None)
  Receive Date: 20040226
  Receipt Date: 20031112
  Transmission Date: 20041129
  Serious: No
  Sender: FDA-Public Use
  Company Number: US-BRISTOL-MYERS SQUIBB COMPANY-12433744

PATIENT
  Sex: Female

DRUGS (6)
  1. ABILIFY [Suspect]
     Indication: SUICIDAL IDEATION
     Dosage: 7.5 MG JUL-03; INCREASED TO 30 MG AUG-03; D/C (NO DATE) THEN 7.5 MG NOV-03.
     Route: 048
     Dates: start: 20030701
  2. ABILIFY [Suspect]
     Indication: DEPRESSION
     Dosage: 7.5 MG JUL-03; INCREASED TO 30 MG AUG-03; D/C (NO DATE) THEN 7.5 MG NOV-03.
     Route: 048
     Dates: start: 20030701
  3. ABILIFY [Suspect]
     Indication: HALLUCINATION, AUDITORY
     Dosage: 7.5 MG JUL-03; INCREASED TO 30 MG AUG-03; D/C (NO DATE) THEN 7.5 MG NOV-03.
     Route: 048
     Dates: start: 20030701
  4. CELEXA [Concomitant]
  5. KLONOPIN [Concomitant]
  6. BUSPAR [Concomitant]

REACTIONS (1)
  - TREMOR [None]
